FAERS Safety Report 19889271 (Version 2)
Quarter: 2021Q4

REPORT INFORMATION
  Report Type: Spontaneous
  Country: US (occurrence: US)
  Receive Date: 20210927
  Receipt Date: 20211104
  Transmission Date: 20220303
  Serious: Yes (Other)
  Sender: FDA-Public Use
  Company Number: US-AMGEN-USASP2021145451

PATIENT
  Age: 72 Year
  Sex: Female

DRUGS (18)
  1. PROLIA [Suspect]
     Active Substance: DENOSUMAB
     Indication: Osteoporosis postmenopausal
     Dosage: 60 MILLIGRAM, Q6MO
     Route: 058
  2. CALCIUM\VITAMIN D [Concomitant]
     Active Substance: CALCIUM\VITAMIN D
  3. AMLODIPINE [Concomitant]
     Active Substance: AMLODIPINE BESYLATE
  4. CALCIUM CARBONATE [Concomitant]
     Active Substance: CALCIUM CARBONATE
  5. CLOBETASOL [Concomitant]
     Active Substance: CLOBETASOL
  6. CLONAZEPAM [Concomitant]
     Active Substance: CLONAZEPAM
  7. COUMADIN [Concomitant]
     Active Substance: WARFARIN SODIUM
  8. DULOXETINE [Concomitant]
     Active Substance: DULOXETINE
  9. FUROSEMIDE [Concomitant]
     Active Substance: FUROSEMIDE
  10. GABAPENTIN [Concomitant]
     Active Substance: GABAPENTIN
  11. LIDOCAINE [Concomitant]
     Active Substance: LIDOCAINE
  12. LISINOPRIL [Concomitant]
     Active Substance: LISINOPRIL
  13. LYRICA [Concomitant]
     Active Substance: PREGABALIN
  14. METOPROLOL SUCCINATE [Concomitant]
     Active Substance: METOPROLOL SUCCINATE
  15. VITAMINS [Concomitant]
     Active Substance: VITAMINS
  16. ROSUVASTATIN [Concomitant]
     Active Substance: ROSUVASTATIN
  17. TRAZODONE [Concomitant]
     Active Substance: TRAZODONE HYDROCHLORIDE
  18. VITAMIN D3 [Concomitant]
     Active Substance: CHOLECALCIFEROL

REACTIONS (10)
  - Neurogenic bladder [Unknown]
  - Atrial fibrillation [Unknown]
  - Stress fracture [Unknown]
  - Heart valve incompetence [Unknown]
  - Blood cholesterol increased [Unknown]
  - Back pain [Unknown]
  - Myalgia [Unknown]
  - Urinary tract infection [Unknown]
  - Pain in extremity [Unknown]
  - Weight increased [Not Recovered/Not Resolved]

NARRATIVE: CASE EVENT DATE: 20210801
